FAERS Safety Report 26187663 (Version 1)
Quarter: 2025Q4

REPORT INFORMATION
  Report Type: Spontaneous
  Country: US (occurrence: None)
  Receive Date: 20251222
  Receipt Date: 20251222
  Transmission Date: 20260118
  Serious: No
  Sender: FDA-CTU
  Company Number: None

PATIENT
  Age: 78 Year
  Sex: Female
  Weight: 48.53 kg

DRUGS (15)
  1. PILOCARPINE [Suspect]
     Active Substance: PILOCARPINE
     Indication: Sjogren^s syndrome
     Dosage: 270  3 X DAILY BY MOUTH
     Route: 048
     Dates: start: 20250201, end: 20251009
  2. PERPHENAZINE [Suspect]
     Active Substance: PERPHENAZINE
  3. LEVOTHYROXINE [Concomitant]
     Active Substance: LEVOTHYROXINE
  4. PANTOPRAZOLE [Concomitant]
     Active Substance: PANTOPRAZOLE
  5. PLAQUENIL [Concomitant]
     Active Substance: HYDROXYCHLOROQUINE SULFATE
  6. ROSUVASTATIN [Concomitant]
     Active Substance: ROSUVASTATIN
  7. AMLODIPINE [Concomitant]
     Active Substance: AMLODIPINE BESYLATE
  8. DICYCLOMINE [Concomitant]
     Active Substance: DICYCLOMINE HYDROCHLORIDE
  9. Krill-Omega w/COQ10 [Concomitant]
  10. Glucosamine HCI [Concomitant]
  11. MSN [Concomitant]
  12. Calcium/Magnesium/Zinc/D3 [Concomitant]
  13. Lutein/Zeaxanthin [Concomitant]
  14. PROBIOTICS NOS [Concomitant]
     Active Substance: PROBIOTICS NOS
  15. Physillium [Concomitant]

REACTIONS (7)
  - Product dispensing error [None]
  - Product dispensing error [None]
  - Product commingling [None]
  - Nausea [None]
  - Vomiting [None]
  - Diarrhoea [None]
  - Wrong product administered [None]

NARRATIVE: CASE EVENT DATE: 20250101
